FAERS Safety Report 5377512-X (Version None)
Quarter: 2007Q3

REPORT INFORMATION
  Report Type: 
  Country: None (occurrence: None)
  Receive Date: 20070703
  Receipt Date: 20070627
  Transmission Date: 20080115
  Serious: Yes (Hospitalization, Other)
  Sender: FDA-Public Use
  Company Number: BR-ABBOTT-07P-020-0369324-00

PATIENT
  Sex: Female
  Weight: 51 kg

DRUGS (6)
  1. HUMIRA [Suspect]
     Indication: RHEUMATOID ARTHRITIS
     Route: 058
     Dates: start: 20060601
  2. ACETYLSALICYLIC ACID SRT [Concomitant]
     Indication: VEIN DISORDER
     Route: 048
  3. METHOTREXATE [Concomitant]
     Indication: RHEUMATOID ARTHRITIS
     Route: 048
  4. DICLOFENAC SODIUM [Concomitant]
     Indication: ARTHRALGIA
     Route: 048
  5. PREDNISONE TAB [Concomitant]
     Indication: ARTHRALGIA
     Route: 048
  6. NAZATRAT [Concomitant]
     Indication: DEPRESSION
     Route: 050

REACTIONS (7)
  - ABDOMINAL PAIN UPPER [None]
  - ARTHROPATHY [None]
  - ATROPHY [None]
  - DEVICE FAILURE [None]
  - DYSPNOEA [None]
  - OVARIAN CYST [None]
  - POLYMENORRHOEA [None]
